FAERS Safety Report 13662454 (Version 1)
Quarter: 2017Q2

REPORT INFORMATION
  Report Type: Spontaneous
  Country: GB (occurrence: GB)
  Receive Date: 20170617
  Receipt Date: 20170617
  Transmission Date: 20170830
  Serious: Yes (Other)
  Sender: FDA-Public Use
  Company Number: GB-AUROBINDO-AUR-APL-2017-35394

PATIENT
  Sex: Male

DRUGS (1)
  1. RIBAVIRIN 200MG CAPSULES, HARD [Suspect]
     Active Substance: RIBAVIRIN
     Indication: PRODUCT USED FOR UNKNOWN INDICATION
     Dosage: UNK
     Route: 048

REACTIONS (3)
  - Hypotension [Unknown]
  - Gastrointestinal haemorrhage [Unknown]
  - Anaemia [Unknown]
